FAERS Safety Report 13942400 (Version 3)
Quarter: 2024Q4

REPORT INFORMATION
  Report Type: Spontaneous
  Country: IT (occurrence: IT)
  Receive Date: 20170907
  Receipt Date: 20241224
  Transmission Date: 20250115
  Serious: Yes (Other)
  Sender: MERCK
  Company Number: IT-009507513-1709ITA002377

PATIENT

DRUGS (1)
  1. RIBAVIRIN [Suspect]
     Active Substance: RIBAVIRIN
     Indication: Hepatitis C
     Dosage: WEIGHT-BASED DOSE ({65 KG, 800 MG PER DAY; }=65 AND {75KG, 1000 MG PER DAY; }=75KG, 1200 MG PER DAY)
     Route: 048

REACTIONS (1)
  - Gastrointestinal haemorrhage [Unknown]
